FAERS Safety Report 6132258-5 (Version None)
Quarter: 2009Q1

REPORT INFORMATION
  Report Type: 
  Country: None (occurrence: None)
  Receive Date: 20090325
  Receipt Date: 20090310
  Transmission Date: 20090719
  Serious: Yes (Death, Life-Threatening)
  Sender: FDA-Public Use
  Company Number: FR-PFIZER INC-2007023688

PATIENT

DRUGS (9)
  1. LYRICA [Suspect]
     Indication: NEURALGIA
     Route: 048
     Dates: start: 20061218, end: 20070314
  2. LYRICA [Suspect]
     Indication: NEUROPATHY PERIPHERAL
  3. HYDROXYZINE HYDROCHLORIDE [Suspect]
     Route: 048
  4. BACLOFEN [Suspect]
     Route: 048
  5. TROSPIUM CHLORIDE [Suspect]
     Route: 048
  6. TRAMADOL [Suspect]
  7. CLOMIPRAMINE [Suspect]
     Route: 048
  8. ESOMEPRAZOLE [Concomitant]
     Route: 048
  9. CLONAZEPAM [Concomitant]
     Route: 048

REACTIONS (2)
  - CARDIAC ARREST [None]
  - PULMONARY EMBOLISM [None]
